FAERS Safety Report 5943427-9 (Version None)
Quarter: 2008Q4

REPORT INFORMATION
  Report Type: 
  Country: None (occurrence: None)
  Receive Date: 20081106
  Receipt Date: 20081028
  Transmission Date: 20090506
  Serious: Yes (Hospitalization)
  Sender: FDA-Public Use
  Company Number: US-AVENTIS-200717314US

PATIENT
  Sex: Male

DRUGS (34)
  1. KETEK [Suspect]
     Indication: SINUSITIS
     Dates: start: 20050907, end: 20050916
  2. KETEK [Suspect]
     Dates: start: 20050916, end: 20051001
  3. TESSALON [Concomitant]
  4. CEPHALAX [Concomitant]
     Dosage: DOSE: UNK
     Dates: start: 20050901
  5. ALLEGRA [Concomitant]
  6. NEXIUM [Concomitant]
  7. ATENOLOL [Concomitant]
  8. BENICAR [Concomitant]
     Dosage: DOSE: 40/12.5
  9. NIASPAN [Concomitant]
  10. FINACEA [Concomitant]
     Dosage: DOSE: UNK
  11. HYDROCHLOROTHIAZIDE [Concomitant]
     Dosage: DOSE: UNK
  12. IBUPROFEN TABLETS [Concomitant]
  13. AVALIDE [Concomitant]
  14. AVAPRO [Concomitant]
  15. NASACORT [Concomitant]
     Dosage: DOSE: 2 SPRAYS
     Route: 045
  16. CLARITIN [Concomitant]
  17. PRILOSEC [Concomitant]
  18. PATANOL [Concomitant]
     Dosage: DOSE: 1 DROP
     Route: 047
  19. LIPITOR [Concomitant]
  20. NEXIUM [Concomitant]
  21. TETRACYCLINE [Concomitant]
  22. SKELAXIN [Concomitant]
  23. ASTELIN                            /00884002/ [Concomitant]
  24. HYDROCODONE [Concomitant]
     Dosage: DOSE: UNK
  25. VYTORIN [Concomitant]
     Dosage: DOSE: UNK
  26. MELOXICAM [Concomitant]
     Dosage: DOSE: UNK
  27. PULMICORT-100 [Concomitant]
     Dosage: DOSE: UNK
  28. AVELOX [Concomitant]
  29. CLONAZEPAM [Concomitant]
  30. ELIDEL [Concomitant]
     Dosage: DOSE: UNK
  31. BIAXIN [Concomitant]
  32. MOBIC [Concomitant]
  33. METHOCARBAMOL [Concomitant]
  34. ANALPRAM-HC [Concomitant]
     Dosage: DOSE: UNK

REACTIONS (23)
  - ABDOMINAL PAIN [None]
  - ABDOMINAL PAIN UPPER [None]
  - ANOREXIA [None]
  - ASTHENIA [None]
  - BACK PAIN [None]
  - CHEST DISCOMFORT [None]
  - CHILLS [None]
  - CHROMATURIA [None]
  - FATIGUE [None]
  - HEADACHE [None]
  - HEPATIC ENZYME INCREASED [None]
  - HEPATIC NECROSIS [None]
  - HEPATITIS [None]
  - HEPATOMEGALY [None]
  - HYPERHIDROSIS [None]
  - INFLUENZA [None]
  - MYALGIA [None]
  - NASAL CONGESTION [None]
  - NASAL DISCOMFORT [None]
  - NAUSEA [None]
  - PAIN [None]
  - PYREXIA [None]
  - VOMITING [None]
